FAERS Safety Report 13801219 (Version 1)
Quarter: 2017Q3

REPORT INFORMATION
  Report Type: Spontaneous
  Country: DE (occurrence: DE)
  Receive Date: 20170727
  Receipt Date: 20170727
  Transmission Date: 20171127
  Serious: Yes (Life-Threatening, Other)
  Sender: FDA-Public Use
  Company Number: GXKR2017DE003824

PATIENT
  Age: 46 Year
  Sex: Male
  Weight: 70 kg

DRUGS (2)
  1. SELINCRO [Interacting]
     Active Substance: NALMEFENE HYDROCHLORIDE DIHYDRATE
     Indication: ALCOHOLISM
     Dosage: 18 MG, UNK
     Route: 048
     Dates: start: 20170718, end: 20170718
  2. METHADONE [Suspect]
     Active Substance: METHADONE HYDROCHLORIDE
     Indication: PRODUCT USED FOR UNKNOWN INDICATION
     Dosage: UNK UKN, UNK
     Route: 048
     Dates: start: 20000101, end: 20170720

REACTIONS (8)
  - Hyperkinesia [Recovering/Resolving]
  - Aphasia [Recovering/Resolving]
  - Hallucination [Recovered/Resolved]
  - Dyskinesia [Recovering/Resolving]
  - Movement disorder [Recovering/Resolving]
  - Nystagmus [Recovered/Resolved]
  - Opisthotonus [Recovering/Resolving]
  - Diarrhoea [Recovered/Resolved]

NARRATIVE: CASE EVENT DATE: 20170718
